FAERS Safety Report 25957990 (Version 1)
Quarter: 2025Q4

REPORT INFORMATION
  Report Type: Spontaneous
  Country: US (occurrence: US)
  Receive Date: 20251024
  Receipt Date: 20251024
  Transmission Date: 20260118
  Serious: Yes (Hospitalization)
  Sender: SCPHARMACEUTICALS
  Company Number: US-SCPHARMACEUTICALS-2025-SCPH-US000694

PATIENT

DRUGS (3)
  1. FUROSCIX [Suspect]
     Active Substance: FUROSEMIDE
     Indication: Fluid retention
     Dosage: ON 14-AUG-2025 OR 15-AUG-2025, 80 MG
     Route: 058
  2. FUROSCIX [Suspect]
     Active Substance: FUROSEMIDE
     Dosage: 80 MG
     Route: 058
     Dates: start: 20250817, end: 20250817
  3. FUROSCIX [Suspect]
     Active Substance: FUROSEMIDE
     Dosage: 80 MG
     Route: 058
     Dates: start: 20250818, end: 20250818

REACTIONS (1)
  - Condition aggravated [Recovered/Resolved]

NARRATIVE: CASE EVENT DATE: 20250820
